FAERS Safety Report 5819108-9 (Version None)
Quarter: 2008Q3

REPORT INFORMATION
  Report Type: 
  Country: None (occurrence: None)
  Receive Date: 20080723
  Receipt Date: 20080709
  Transmission Date: 20090109
  Serious: Yes (Other)
  Sender: FDA-Public Use
  Company Number: US-BAYER-200812803BCC

PATIENT
  Age: 67 Year
  Sex: Female
  Weight: 59 kg

DRUGS (1)
  1. BAYER EXTRA STRENGTH BACK + BODY PAIN ASPIRIN [Suspect]
     Indication: BACK PAIN
     Dosage: AS USED: 1000 MG  UNIT DOSE: 500 MG
     Route: 048
     Dates: start: 20080701

REACTIONS (1)
  - CHEST PAIN [None]
